FAERS Safety Report 4386439-1 (Version None)
Quarter: 2004Q2

REPORT INFORMATION
  Report Type: 
  Country: None (occurrence: None)
  Receive Date: 20040623
  Receipt Date: 20040609
  Transmission Date: 20050107
  Serious: Yes (Congenital Anomaly)
  Sender: FDA-Public Use
  Company Number: GBS040615058

PATIENT
  Sex: Male

DRUGS (2)
  1. FLUOXETINE [Suspect]
  2. PENICILLIN V (PEHNOXYMETHYLPENICILLIN) [Concomitant]

REACTIONS (4)
  - DEAFNESS NEUROSENSORY [None]
  - DEAFNESS UNILATERAL [None]
  - DRUG EXPOSURE DURING PREGNANCY [None]
  - FOETAL DISORDER [None]
